FAERS Safety Report 8085248-X (Version None)
Quarter: 2012Q1

REPORT INFORMATION
  Report Type: 
  Country: None (occurrence: None)
  Receive Date: 20120128
  Receipt Date: 20110321
  Transmission Date: 20120608
  Serious: No
  Sender: FDA-Public Use
  Company Number: US-ABBOTT-11P-163-0713246-00

PATIENT
  Sex: Female
  Weight: 63.56 kg

DRUGS (6)
  1. FISH OIL [Concomitant]
     Indication: MINERAL SUPPLEMENTATION
  2. VITAMIN D [Concomitant]
     Indication: VITAMIN SUPPLEMENTATION
  3. HUMIRA [Suspect]
     Route: 058
     Dates: start: 20110321
  4. SIMVASTATIN [Concomitant]
     Indication: BLOOD CHOLESTEROL INCREASED
  5. COQ10 [Concomitant]
     Indication: MEDICAL DIET
  6. HUMIRA [Suspect]
     Indication: CROHN'S DISEASE
     Route: 058
     Dates: start: 20110101

REACTIONS (1)
  - CROHN'S DISEASE [None]
